FAERS Safety Report 22265262 (Version 1)
Quarter: 2023Q2

REPORT INFORMATION
  Report Type: Report from Study
  Country: US (occurrence: US)
  Receive Date: 20230428
  Receipt Date: 20230428
  Transmission Date: 20230721
  Serious: Yes (Other)
  Sender: FDA-Public Use
  Company Number: US-TAKEDA-US202004304

PATIENT
  Age: 60 Year
  Sex: Male

DRUGS (2)
  1. HUMAN IMMUNOGLOBULIN G [Suspect]
     Active Substance: HUMAN IMMUNOGLOBULIN G
     Indication: Primary immunodeficiency syndrome
     Dosage: UNK UNK, 1/WEEK
     Route: 058
  2. HUMAN IMMUNOGLOBULIN G [Suspect]
     Active Substance: HUMAN IMMUNOGLOBULIN G
     Dosage: 2 GRAM, Q2WEEKS
     Route: 058
     Dates: start: 20200116, end: 20210422

REACTIONS (13)
  - Lyme disease [Unknown]
  - Drug hypersensitivity [Recovered/Resolved]
  - Impaired quality of life [Not Recovered/Not Resolved]
  - Toxoplasmosis [Unknown]
  - Infusion related reaction [Unknown]
  - Musculoskeletal stiffness [Unknown]
  - Frustration tolerance decreased [Unknown]
  - Depression [Unknown]
  - Inappropriate schedule of product administration [Not Recovered/Not Resolved]
  - Vision blurred [Unknown]
  - Visual impairment [Unknown]
  - Headache [Unknown]
  - Malaise [Unknown]

NARRATIVE: CASE EVENT DATE: 20200116
